FAERS Safety Report 16439372 (Version 2)
Quarter: 2019Q3

REPORT INFORMATION
  Report Type: Report from Study
  Country: RU (occurrence: RU)
  Receive Date: 20190617
  Receipt Date: 20190715
  Transmission Date: 20191004
  Serious: Yes (Death)
  Sender: FDA-Public Use
  Company Number: RU-EMD SERONO-E2B_90068597

PATIENT
  Age: 50 Year
  Sex: Male
  Weight: 52 kg

DRUGS (4)
  1. CISPLATIN. [Suspect]
     Active Substance: CISPLATIN
     Indication: SQUAMOUS CELL CARCINOMA OF HEAD AND NECK
     Dosage: 210 MG, CYCLIC: DAYS 1, 22 AND 43 OF CRT PHASE
     Route: 041
     Dates: start: 20181016, end: 20181204
  2. KETOROLAC [Concomitant]
     Active Substance: KETOROLAC TROMETHAMINE
     Indication: MUCOSAL INFLAMMATION
     Dosage: 10 MG, Q12H
     Route: 048
     Dates: start: 20181227
  3. CHLORHEXIDINE [Concomitant]
     Active Substance: CHLORHEXIDINE
     Indication: MUCOSAL INFLAMMATION
     Dosage: 30 ML, AS NEEDED, IRRIGATION
     Dates: start: 20181123
  4. AVELUMAB [Suspect]
     Active Substance: AVELUMAB
     Indication: SQUAMOUS CELL CARCINOMA OF HEAD AND NECK
     Dosage: 520 MG, CYCLIC: DAY 1 OF LEAD-IN PHASE: DAYS 8, 25, 39 OF CRT PHASE; EVERY 2 WEEKS DURING MAINTENANC
     Route: 041
     Dates: start: 20181009, end: 20190528

REACTIONS (1)
  - Pulmonary embolism [Fatal]

NARRATIVE: CASE EVENT DATE: 20190605
